FAERS Safety Report 10786279 (Version 1)
Quarter: 2015Q1

REPORT INFORMATION
  Report Type: Spontaneous
  Country: US (occurrence: None)
  Receive Date: 20150210
  Receipt Date: 20150210
  Transmission Date: 20150721
  Serious: No
  Sender: FDA-Public Use
  Company Number: None

PATIENT
  Age: 37 Year
  Sex: Female
  Weight: 53.07 kg

DRUGS (1)
  1. CIPROFLOXACIN HCL 500 MG TAB DR. REDDY^S LAB [Suspect]
     Active Substance: CIPROFLOXACIN HYDROCHLORIDE
     Indication: PROPHYLAXIS
     Dosage: 1 PILL, TWICE DAILY, TAKEN BY MOUTH
     Route: 048
     Dates: start: 20150205, end: 20150208

REACTIONS (5)
  - Decreased appetite [None]
  - Nausea [None]
  - Chest pain [None]
  - Dizziness [None]
  - Arrhythmia [None]

NARRATIVE: CASE EVENT DATE: 20150207
